FAERS Safety Report 9315603 (Version 1)
Quarter: 2013Q2

REPORT INFORMATION
  Report Type: Spontaneous
  Country: JP (occurrence: JP)
  Receive Date: 20130529
  Receipt Date: 20130529
  Transmission Date: 20140414
  Serious: Yes (Other)
  Sender: FDA-Public Use
  Company Number: JP-ALEXION-A201301164

PATIENT
  Age: 73 Year
  Sex: Female

DRUGS (3)
  1. SOLIRIS 300MG [Suspect]
     Indication: PAROXYSMAL NOCTURNAL HAEMOGLOBINURIA
     Dosage: 900 MG, Q2W
     Route: 042
     Dates: start: 20101118
  2. EXJADE [Concomitant]
     Dosage: 1000 MG, QD
  3. THYRADIN-S [Concomitant]
     Dosage: 100 ?G, QD

REACTIONS (2)
  - Renal failure chronic [Unknown]
  - Transfusion [Unknown]
